FAERS Safety Report 11195803 (Version 1)
Quarter: 2015Q2

REPORT INFORMATION
  Report Type: Report from Study
  Country: US (occurrence: US)
  Receive Date: 20150617
  Receipt Date: 20150617
  Transmission Date: 20150821
  Serious: Yes (Other)
  Sender: FDA-Public Use
  Company Number: US-SA-2015SA025711

PATIENT
  Age: 48 Year
  Sex: Female

DRUGS (2)
  1. PREDNISONE. [Concomitant]
     Active Substance: PREDNISONE
  2. LEMTRADA [Suspect]
     Active Substance: ALEMTUZUMAB
     Indication: MULTIPLE SCLEROSIS
     Route: 042
     Dates: start: 20150202, end: 20150206

REACTIONS (16)
  - Nausea [Unknown]
  - Asthenia [Unknown]
  - Contusion [Unknown]
  - Urinary tract infection [Unknown]
  - Abasia [Unknown]
  - Visual impairment [Unknown]
  - Hypoaesthesia oral [Unknown]
  - Dizziness [Unknown]
  - Headache [Unknown]
  - Balance disorder [Unknown]
  - Fatigue [Unknown]
  - Alopecia [Unknown]
  - Paraesthesia oral [Unknown]
  - Insomnia [Unknown]
  - Hypoaesthesia [Unknown]
  - Oedema peripheral [Unknown]

NARRATIVE: CASE EVENT DATE: 201502
